FAERS Safety Report 16237009 (Version 2)
Quarter: 2019Q2

REPORT INFORMATION
  Report Type: Spontaneous
  Country: US (occurrence: US)
  Receive Date: 20190425
  Receipt Date: 20190510
  Transmission Date: 20190711
  Serious: Yes (Other)
  Sender: FDA-Public Use
  Company Number: US-AMGEN-USASP2019061698

PATIENT
  Age: 74 Year
  Sex: Female

DRUGS (5)
  1. PROLIA [Suspect]
     Active Substance: DENOSUMAB
     Indication: OSTEOPOROSIS POSTMENOPAUSAL
     Dosage: 60 MILLIGRAM, Q6MO
     Route: 065
     Dates: start: 2015
  2. PRAVASTATIN. [Concomitant]
     Active Substance: PRAVASTATIN
     Dosage: 40 MILLIGRAM
  3. GEMFIBROZIL. [Concomitant]
     Active Substance: GEMFIBROZIL
  4. PANTOPRAZOLE [Concomitant]
     Active Substance: PANTOPRAZOLE
     Dosage: 40 MILLIGRAM
  5. ASPIRIN [ACETYLSALICYLIC ACID] [Concomitant]
     Active Substance: ASPIRIN
     Dosage: 81 MILLIGRAM

REACTIONS (8)
  - Macular degeneration [Recovering/Resolving]
  - Therapeutic product effect incomplete [Unknown]
  - Large intestine polyp [Unknown]
  - Precancerous cells present [Unknown]
  - Tooth infection [Unknown]
  - Bone loss [Unknown]
  - Coronary artery occlusion [Unknown]
  - Impaired healing [Unknown]
